FAERS Safety Report 5351065-4 (Version None)
Quarter: 2007Q2

REPORT INFORMATION
  Report Type: 
  Country: None (occurrence: None)
  Receive Date: 20070606
  Receipt Date: 20070525
  Transmission Date: 20071010
  Serious: Yes (Hospitalization)
  Sender: FDA-Public Use
  Company Number: OXER20070020

PATIENT
  Age: 56 Year
  Sex: Male
  Weight: 75.7507 kg

DRUGS (2)
  1. OXYCODONE HCL [Suspect]
     Indication: EYE PAIN
     Dosage: 1 TAB BID, PER ORAL
     Route: 048
     Dates: start: 20070501, end: 20070509
  2. HYDROCHLOROTHIAZIDE [Concomitant]

REACTIONS (13)
  - ANOREXIA [None]
  - CONSTIPATION [None]
  - DRUG HYPERSENSITIVITY [None]
  - DRY MOUTH [None]
  - DYSKINESIA [None]
  - EYELID OEDEMA [None]
  - GINGIVAL BLEEDING [None]
  - HEART RATE IRREGULAR [None]
  - INSOMNIA [None]
  - PAIN [None]
  - SUICIDAL IDEATION [None]
  - SWELLING FACE [None]
  - TREMOR [None]
